FAERS Safety Report 8261581-3 (Version None)
Quarter: 2012Q2

REPORT INFORMATION
  Report Type: 
  Country: None (occurrence: None)
  Receive Date: 20120402
  Receipt Date: 20120317
  Transmission Date: 20120825
  Serious: Yes (Hospitalization)
  Sender: FDA-Public Use
  Company Number: 2012AP000760

PATIENT
  Age: 46 Year
  Sex: Female

DRUGS (2)
  1. LITHIUM CARBONATE [Suspect]
     Indication: DEPRESSION
     Dosage: 300 MG, BID
  2. ISOCARBOXAZID [Suspect]
     Indication: DEPRESSION
     Dosage: 40;60 MG, QD

REACTIONS (9)
  - NAUSEA [None]
  - CHEST DISCOMFORT [None]
  - STRESS CARDIOMYOPATHY [None]
  - DRUG INTERACTION [None]
  - SEROTONIN SYNDROME [None]
  - DIZZINESS [None]
  - HYPOTENSION [None]
  - PULMONARY HYPERTENSION [None]
  - HEADACHE [None]
